FAERS Safety Report 7475796-5 (Version None)
Quarter: 2011Q2

REPORT INFORMATION
  Report Type: 
  Country: None (occurrence: None)
  Receive Date: 20110512
  Receipt Date: 20110509
  Transmission Date: 20111010
  Serious: Yes (Other)
  Sender: FDA-Public Use
  Company Number: GB-PFIZER INC-2011003566

PATIENT
  Age: 46 Year
  Sex: Male

DRUGS (8)
  1. IBUPROFEN [Suspect]
     Indication: ANALGESIC THERAPY
     Dosage: 400 MG, UNK
  2. IBUPROFEN [Suspect]
     Indication: PROCEDURAL PAIN
  3. GINGER [Suspect]
  4. GINKGO BILOBA [Suspect]
  5. GINSENG [Suspect]
  6. ACETAMINOPHEN [Suspect]
     Indication: PROCEDURAL PAIN
  7. GARLIC [Suspect]
  8. ACETAMINOPHEN [Suspect]
     Indication: ANALGESIC THERAPY
     Dosage: 1000 MG, UNK

REACTIONS (2)
  - DRUG INTERACTION [None]
  - POST PROCEDURAL HAEMORRHAGE [None]
